FAERS Safety Report 14159000 (Version 2)
Quarter: 2017Q4

REPORT INFORMATION
  Report Type: Report from Study
  Country: US (occurrence: US)
  Receive Date: 20171106
  Receipt Date: 20171205
  Transmission Date: 20180321
  Serious: Yes (Death, Other)
  Sender: FDA-Public Use
  Company Number: US-ROCHE-1949056

PATIENT

DRUGS (2)
  1. TACROLIMUS. [Suspect]
     Active Substance: TACROLIMUS
     Indication: IMMUNOSUPPRESSION
     Route: 048
  2. MYCOPHENOLATE MOFETIL. [Suspect]
     Active Substance: MYCOPHENOLATE MOFETIL
     Indication: IMMUNOSUPPRESSION
     Dosage: 500 MG OR 1,000 MG TWICE DAILY
     Route: 065

REACTIONS (7)
  - Ovarian cancer metastatic [Unknown]
  - Infection [Fatal]
  - Cytomegalovirus infection [Unknown]
  - Mucormycosis [Unknown]
  - Basal cell carcinoma [Unknown]
  - Breast cancer metastatic [Unknown]
  - Aspergillus infection [Unknown]
